FAERS Safety Report 25643112 (Version 1)
Quarter: 2025Q3

REPORT INFORMATION
  Report Type: Report from Study
  Country: EU (occurrence: EU)
  Receive Date: 20250805
  Receipt Date: 20250805
  Transmission Date: 20251020
  Serious: Yes (Hospitalization)
  Sender: ABBVIE
  Company Number: EU-ABBVIE-6397697

PATIENT
  Age: 82 Year
  Sex: Female

DRUGS (1)
  1. FOSCARBIDOPA\FOSLEVODOPA [Suspect]
     Active Substance: FOSCARBIDOPA\FOSLEVODOPA
     Indication: Parkinson^s disease
     Route: 058

REACTIONS (5)
  - Movement disorder [Unknown]
  - Arthralgia [Recovering/Resolving]
  - Muscle rigidity [Recovering/Resolving]
  - Underdose [Unknown]
  - Malaise [Unknown]

NARRATIVE: CASE EVENT DATE: 20250701
